FAERS Safety Report 8497703-9 (Version None)
Quarter: 2012Q3

REPORT INFORMATION
  Report Type: 
  Country: None (occurrence: None)
  Receive Date: 20120709
  Receipt Date: 20120604
  Transmission Date: 20120928
  Serious: No
  Sender: FDA-Public Use
  Company Number: US-AMGEN-USASP2012034978

PATIENT
  Age: 43 Year
  Sex: Female

DRUGS (2)
  1. ENBREL [Suspect]
     Indication: PSORIASIS
  2. ENBREL [Suspect]
     Indication: PSORIATIC ARTHROPATHY
     Dosage: 50 MG, QWK
     Dates: start: 20120311

REACTIONS (6)
  - TOOTH DISORDER [None]
  - SINUSITIS [None]
  - PSORIATIC ARTHROPATHY [None]
  - NASOPHARYNGITIS [None]
  - PSORIASIS [None]
  - TOOTH FRACTURE [None]
